FAERS Safety Report 25562761 (Version 1)
Quarter: 2025Q3

REPORT INFORMATION
  Report Type: Spontaneous
  Country: CN (occurrence: CN)
  Receive Date: 20250716
  Receipt Date: 20250716
  Transmission Date: 20251020
  Serious: Yes (Other)
  Sender: OCTAPHARMA
  Company Number: CN-OCTA-2025000610

PATIENT
  Age: 67 Year
  Sex: Male
  Weight: 48 kg

DRUGS (1)
  1. ALBUMIN HUMAN [Suspect]
     Active Substance: ALBUMIN HUMAN
     Indication: Hypoproteinaemia
     Dosage: 10 G
     Route: 042
     Dates: start: 20250707, end: 20250707

REACTIONS (3)
  - Pyrexia [Recovered/Resolved]
  - Chills [Recovering/Resolving]
  - Cold sweat [Recovering/Resolving]

NARRATIVE: CASE EVENT DATE: 20250707
